FAERS Safety Report 17779215 (Version 1)
Quarter: 2020Q2

REPORT INFORMATION
  Report Type: Spontaneous
  Country: DE (occurrence: DE)
  Receive Date: 20200513
  Receipt Date: 20200513
  Transmission Date: 20200714
  Serious: Yes (Hospitalization)
  Sender: FDA-Public Use
  Company Number: DE-MYLANLABS-2020M1045905

PATIENT
  Age: 66 Year

DRUGS (3)
  1. DOXYCYCLINE. [Concomitant]
     Active Substance: DOXYCYCLINE
     Dosage: UNK
     Route: 065
  2. METRONIDAZOLE. [Suspect]
     Active Substance: METRONIDAZOLE
     Indication: GRANULOMATOUS ROSACEA
     Dosage: 400 MILLIGRAM, QD
     Route: 048
  3. IVERMECTIN. [Concomitant]
     Active Substance: IVERMECTIN
     Dosage: UNK
     Route: 061

REACTIONS (1)
  - Off label use [Unknown]
